FAERS Safety Report 5357757-5 (Version None)
Quarter: 2007Q2

REPORT INFORMATION
  Report Type: 
  Country: None (occurrence: None)
  Receive Date: 20070614
  Receipt Date: 20070605
  Transmission Date: 20071010
  Serious: Yes (Other)
  Sender: FDA-Public Use
  Company Number: FR-ABBOTT-07P-056-0371123-00

PATIENT
  Sex: Female

DRUGS (3)
  1. KALETRA [Suspect]
     Indication: HIV INFECTION
     Dates: start: 20070201
  2. LAMIVUDINE [Suspect]
     Indication: HIV INFECTION
     Dates: start: 20070201
  3. ZIDOVUDINE [Suspect]
     Indication: HIV INFECTION
     Dates: start: 20070201

REACTIONS (1)
  - PRE-ECLAMPSIA [None]
